FAERS Safety Report 9752962 (Version 1)
Quarter: 2013Q4

REPORT INFORMATION
  Report Type: Spontaneous
  Country: US (occurrence: None)
  Receive Date: 20131212
  Receipt Date: 20131212
  Transmission Date: 20140711
  Serious: No
  Sender: FDA-Public Use
  Company Number: None

PATIENT
  Age: 50 None
  Sex: Female

DRUGS (1)
  1. ESTERIFIED ESTROGENS + MEHYLTESTOSTERONE [Suspect]
     Indication: MENOPAUSE
     Route: 048
     Dates: start: 20131127, end: 20131201

REACTIONS (4)
  - Hot flush [None]
  - Menopausal symptoms [None]
  - Product substitution issue [None]
  - Affective disorder [None]
